FAERS Safety Report 6889645-7 (Version None)
Quarter: 2010Q3

REPORT INFORMATION
  Report Type: 
  Country: None (occurrence: None)
  Receive Date: 20100730
  Receipt Date: 20080326
  Transmission Date: 20110219
  Serious: No
  Sender: FDA-Public Use
  Company Number: US-PFIZER INC-2008027050

PATIENT
  Sex: Female
  Weight: 62.727 kg

DRUGS (2)
  1. LIPITOR [Suspect]
     Indication: BLOOD CHOLESTEROL INCREASED
     Dosage: AT BEDTIME
     Dates: start: 20040101
  2. HEPAGRISEVIT FORTE-N TABLET [Concomitant]

REACTIONS (3)
  - ARTHRALGIA [None]
  - FLUID RETENTION [None]
  - OEDEMA PERIPHERAL [None]
